FAERS Safety Report 4481412-7 (Version None)
Quarter: 2004Q3

REPORT INFORMATION
  Report Type: 
  Country: None (occurrence: None)
  Receive Date: 20040923
  Receipt Date: 20040722
  Transmission Date: 20050211
  Serious: No
  Sender: FDA-Public Use
  Company Number: USA040773425

PATIENT
  Age: 54 Year
  Sex: Male

DRUGS (3)
  1. FORTEO [Suspect]
     Indication: OSTEOPOROSIS
     Dates: start: 20040701
  2. TUMS (CALCIUM CARBONATE) [Concomitant]
  3. CALCIUM WITH VITAMIN D [Concomitant]

REACTIONS (4)
  - ANOREXIA [None]
  - INJECTION SITE ERYTHEMA [None]
  - NAUSEA [None]
  - RETCHING [None]
